FAERS Safety Report 23606660 (Version 1)
Quarter: 2024Q1

REPORT INFORMATION
  Report Type: Report from Study
  Country: US (occurrence: None)
  Receive Date: 20240307
  Receipt Date: 20240307
  Transmission Date: 20240410
  Serious: Yes (Other)
  Sender: FDA-Public Use
  Company Number: 2024A051414

PATIENT
  Sex: Female
  Weight: 80.7 kg

DRUGS (1)
  1. TAGRISSO [Suspect]
     Active Substance: OSIMERTINIB
     Indication: Lung neoplasm malignant
     Route: 048
     Dates: start: 202105

REACTIONS (4)
  - Atrial fibrillation [Unknown]
  - Haemoglobin decreased [Unknown]
  - Hypoacusis [Unknown]
  - Tachycardia [Unknown]
